FAERS Safety Report 25973838 (Version 1)
Quarter: 2025Q4

REPORT INFORMATION
  Report Type: Report from Study
  Country: CA (occurrence: CA)
  Receive Date: 20251029
  Receipt Date: 20251029
  Transmission Date: 20260118
  Serious: Yes (Hospitalization)
  Sender: TEVA
  Company Number: CA-TEVA-VS-3385199

PATIENT
  Age: 60 Year
  Sex: Male

DRUGS (9)
  1. PREDNISONE [Suspect]
     Active Substance: PREDNISONE
     Indication: Product used for unknown indication
     Route: 065
  2. PREDNISONE [Suspect]
     Active Substance: PREDNISONE
     Indication: Product used for unknown indication
     Dosage: DOSE FORM: NOT SPECIFIED
     Route: 065
  3. BUDESONIDE\FORMOTEROL FUMARATE [Concomitant]
     Active Substance: BUDESONIDE\FORMOTEROL FUMARATE
     Indication: Product used for unknown indication
  4. ACTEMRA [Suspect]
     Active Substance: TOCILIZUMAB
     Indication: Giant cell arteritis
     Dosage: DOSE FORM: NOT SPECIFIED
     Route: 058
  5. ACTEMRA [Suspect]
     Active Substance: TOCILIZUMAB
     Indication: Giant cell arteritis
     Route: 058
  6. PREGABALIN [Concomitant]
     Active Substance: PREGABALIN
     Indication: Product used for unknown indication
  7. VENTOLIN [Concomitant]
     Active Substance: ALBUTEROL SULFATE
     Indication: Product used for unknown indication
  8. ACETAMINOPHEN; CAFFEINE; CODEINE [Concomitant]
     Indication: Product used for unknown indication
  9. OMNARIS [Concomitant]
     Active Substance: CICLESONIDE
     Indication: Product used for unknown indication
     Dosage: DOSE FORM: SPRAY, METERED DOSE

REACTIONS (5)
  - Dyspnoea [Not Recovered/Not Resolved]
  - Cough [Not Recovered/Not Resolved]
  - Chest pain [Not Recovered/Not Resolved]
  - Bronchitis chronic [Not Recovered/Not Resolved]
  - Drug ineffective [Not Recovered/Not Resolved]
